FAERS Safety Report 10560396 (Version 1)
Quarter: 2014Q4

REPORT INFORMATION
  Report Type: Spontaneous
  Country: IT (occurrence: IT)
  Receive Date: 20141103
  Receipt Date: 20141103
  Transmission Date: 20150529
  Serious: Yes (Hospitalization)
  Sender: FDA-Public Use
  Company Number: IT-BAYER-2014-159813

PATIENT
  Age: 80 Year
  Sex: Male

DRUGS (10)
  1. CALCIUM D3 [Concomitant]
     Active Substance: CALCIUM\CHOLECALCIFEROL
     Dosage: UNK, UNK
  2. REMERON [Concomitant]
     Active Substance: MIRTAZAPINE
     Dosage: UNK, UNK
  3. CARDIOASPIRIN [Suspect]
     Active Substance: ASPIRIN
     Indication: PLATELET AGGREGATION INHIBITION
     Dosage: 100 MG, QD
     Route: 048
  4. OXYGEN. [Concomitant]
     Active Substance: OXYGEN
     Dosage: UNK, UNK
  5. LYRICA [Concomitant]
     Active Substance: PREGABALIN
     Dosage: UNK, UNK
  6. RIGENTEX [Concomitant]
     Dosage: UNK, UNK
  7. BENERVA [Concomitant]
     Active Substance: THIAMINE
     Dosage: UNK, UNK
  8. LANOXIN [Concomitant]
     Active Substance: DIGOXIN
     Dosage: UNK, UNK
  9. ZOLOFT [Concomitant]
     Active Substance: SERTRALINE HYDROCHLORIDE
     Dosage: UNK, UNK
  10. PLAVIX [Suspect]
     Active Substance: CLOPIDOGREL BISULFATE
     Indication: ACUTE CORONARY SYNDROME
     Dosage: 75 MG, QD
     Route: 048

REACTIONS (3)
  - Epistaxis [Recovering/Resolving]
  - Atrial fibrillation [Recovering/Resolving]
  - Melaena [Recovering/Resolving]

NARRATIVE: CASE EVENT DATE: 20140328
